FAERS Safety Report 7568303-X (Version None)
Quarter: 2011Q2

REPORT INFORMATION
  Report Type: 
  Country: None (occurrence: None)
  Receive Date: 20110623
  Receipt Date: 20110609
  Transmission Date: 20111010
  Serious: Yes (Other)
  Sender: FDA-Public Use
  Company Number: US-JNJFOC-20110605438

PATIENT
  Sex: Male

DRUGS (1)
  1. REMICADE [Suspect]
     Indication: COLITIS ULCERATIVE
     Dosage: PATIENT HAS BEEN ON REMICADE FOR ABOUT 9 MONTHS.
     Route: 042

REACTIONS (2)
  - INTESTINAL OPERATION [None]
  - ECZEMA [None]
